FAERS Safety Report 6356982-4 (Version None)
Quarter: 2009Q3

REPORT INFORMATION
  Report Type: 
  Country: None (occurrence: None)
  Receive Date: 20090915
  Receipt Date: 20090904
  Transmission Date: 20100115
  Serious: Yes (Other)
  Sender: FDA-Public Use
  Company Number: US-CELGENEUS-163-21880-09090658

PATIENT
  Sex: Female
  Weight: 62 kg

DRUGS (3)
  1. REVLIMID [Suspect]
     Route: 048
     Dates: start: 20050822, end: 20080713
  2. REVLIMID [Suspect]
     Route: 048
  3. DEXAMETHASONE [Suspect]
     Route: 048
     Dates: start: 20050822

REACTIONS (2)
  - DIARRHOEA [None]
  - HYPONATRAEMIA [None]
